FAERS Safety Report 9266667 (Version 2)
Quarter: 2013Q2

REPORT INFORMATION
  Report Type: Spontaneous
  Country: US (occurrence: US)
  Receive Date: 20130502
  Receipt Date: 20130615
  Transmission Date: 20140414
  Serious: Yes (Death)
  Sender: FDA-Public Use
  Company Number: US-ROCHE-1220472

PATIENT
  Age: 64 Year
  Sex: Male

DRUGS (1)
  1. XELODA [Suspect]
     Indication: OESOPHAGEAL CARCINOMA
     Route: 048
     Dates: start: 20120508

REACTIONS (4)
  - Shock haemorrhagic [Fatal]
  - Haemorrhagic anaemia [Fatal]
  - Gastrointestinal haemorrhage [Fatal]
  - Oesophageal cancer metastatic [Fatal]
